FAERS Safety Report 23626091 (Version 1)
Quarter: 2024Q1

REPORT INFORMATION
  Report Type: Spontaneous
  Country: CA (occurrence: CA)
  Receive Date: 20240313
  Receipt Date: 20240313
  Transmission Date: 20240410
  Serious: Yes (Life-Threatening)
  Sender: FDA-Public Use
  Company Number: CA-HIKMA PHARMACEUTICALS-CA-H14001-24-01926

PATIENT
  Age: 59 Year
  Sex: Female

DRUGS (2)
  1. FENTANYL [Suspect]
     Active Substance: FENTANYL\FENTANYL CITRATE
     Indication: Product used for unknown indication
     Dosage: 25 MICROGRAM
     Route: 042
  2. MIDAZOLAM [Suspect]
     Active Substance: MIDAZOLAM
     Indication: Product used for unknown indication
     Dosage: 2 MILLIGRAM
     Route: 065

REACTIONS (2)
  - Respiratory distress [Unknown]
  - Dyspnoea [Unknown]
